FAERS Safety Report 17252374 (Version 3)
Quarter: 2020Q1

REPORT INFORMATION
  Report Type: Spontaneous
  Country: US (occurrence: US)
  Receive Date: 20200109
  Receipt Date: 20200206
  Transmission Date: 20200409
  Serious: No
  Sender: FDA-Public Use
  Company Number: US-PFIZER INC-2020009313

PATIENT
  Age: 78 Year
  Sex: Female
  Weight: 75.75 kg

DRUGS (3)
  1. REVATIO [Suspect]
     Active Substance: SILDENAFIL CITRATE
     Indication: PULMONARY HYPERTENSION
     Dosage: 20 MG, 3X/DAY
     Route: 048
  2. DIGOXIN. [Concomitant]
     Active Substance: DIGOXIN
     Indication: BLOOD PRESSURE ABNORMAL
     Dosage: 0.125 MG, 1X/DAY
     Route: 048
  3. COREG [Concomitant]
     Active Substance: CARVEDILOL
     Indication: BLOOD PRESSURE ABNORMAL
     Dosage: 12.5 MG, 1X/DAY
     Route: 048

REACTIONS (2)
  - Weight increased [Unknown]
  - Gait disturbance [Unknown]
